FAERS Safety Report 19968500 (Version 1)
Quarter: 2021Q4

REPORT INFORMATION
  Report Type: Spontaneous
  Country: US (occurrence: US)
  Receive Date: 20211019
  Receipt Date: 20211019
  Transmission Date: 20220303
  Serious: Yes (Hospitalization)
  Sender: FDA-Public Use
  Company Number: None

PATIENT
  Age: 79 Year
  Sex: Female
  Weight: 49.1 kg

DRUGS (1)
  1. CARBOPLATIN [Suspect]
     Active Substance: CARBOPLATIN
     Indication: Ovarian cancer
     Dosage: ?          OTHER FREQUENCY:EVERY 3 WEEKS;
     Route: 042
     Dates: start: 20210729

REACTIONS (2)
  - Chest pain [None]
  - Facial discomfort [None]

NARRATIVE: CASE EVENT DATE: 20210823
